FAERS Safety Report 25751015 (Version 1)
Quarter: 2025Q3

REPORT INFORMATION
  Report Type: Spontaneous
  Country: US (occurrence: None)
  Receive Date: 20250830
  Receipt Date: 20250830
  Transmission Date: 20251020
  Serious: Yes (Hospitalization, Other)
  Sender: FDA-CTU
  Company Number: None

PATIENT
  Age: 95 Year
  Sex: Male
  Weight: 66.15 kg

DRUGS (9)
  1. SITAGLIPTIN [Suspect]
     Active Substance: SITAGLIPTIN
     Indication: Glycosylated haemoglobin increased
     Dosage: 1 TABLET DAILY ORAL
     Route: 048
     Dates: start: 20250811, end: 20250827
  2. ATENOLOL [Concomitant]
     Active Substance: ATENOLOL
  3. LASIX LOPID [Concomitant]
  4. SYNTHROID METFORMIN [Concomitant]
  5. NYSTATIN [Concomitant]
     Active Substance: NYSTATIN
  6. PROLOSEC PREDNISONE CRESTOR [Concomitant]
  7. VITAMIN D3 [Concomitant]
     Active Substance: CHOLECALCIFEROL
  8. POTASSIUM [Concomitant]
     Active Substance: POTASSIUM
  9. VITAMIN C [Concomitant]
     Active Substance: ASCORBIC ACID

REACTIONS (8)
  - Asthenia [None]
  - Lethargy [None]
  - Decreased appetite [None]
  - Fall [None]
  - Dehydration [None]
  - Back injury [None]
  - Gait inability [None]
  - Decreased activity [None]

NARRATIVE: CASE EVENT DATE: 20250829
